FAERS Safety Report 12652981 (Version 2)
Quarter: 2016Q3

REPORT INFORMATION
  Report Type: Spontaneous
  Country: US (occurrence: US)
  Receive Date: 20160815
  Receipt Date: 20160901
  Transmission Date: 20161109
  Serious: Yes (Other)
  Sender: FDA-Public Use
  Company Number: US-TEVA-684177USA

PATIENT
  Age: 18 Year
  Sex: Male
  Weight: 44 kg

DRUGS (2)
  1. FLUOROURACIL. [Suspect]
     Active Substance: FLUOROURACIL
     Dosage: DURING CONSOLIDATION THERAPY
     Route: 065
  2. CISPLATIN. [Suspect]
     Active Substance: CISPLATIN
     Dosage: DURING CONCURRENT CHEMO-RADIATION FOLLOWED BY CONSOLIDATION THERAPY
     Route: 065

REACTIONS (1)
  - Adrenal insufficiency [Unknown]
